FAERS Safety Report 6894757-8 (Version None)
Quarter: 2010Q3

REPORT INFORMATION
  Report Type: 
  Country: None (occurrence: None)
  Receive Date: 20100802
  Receipt Date: 20100727
  Transmission Date: 20110219
  Serious: Yes (Other)
  Sender: FDA-Public Use
  Company Number: GB-AMGEN-QUU427435

PATIENT
  Age: 24 Year
  Sex: Female
  Weight: 41 kg

DRUGS (3)
  1. ARANESP [Suspect]
     Indication: DIALYSIS
     Dates: start: 20061120, end: 20071204
  2. EPREX [Suspect]
     Route: 058
     Dates: start: 20071220
  3. BLOOD CELLS, PACKED HUMAN [Concomitant]

REACTIONS (3)
  - DRUG INEFFECTIVE [None]
  - HYPERPARATHYROIDISM [None]
  - LOWER RESPIRATORY TRACT INFECTION [None]
